FAERS Safety Report 5360838-3 (Version None)
Quarter: 2007Q2

REPORT INFORMATION
  Report Type: 
  Country: None (occurrence: None)
  Receive Date: 20070618
  Receipt Date: 20070607
  Transmission Date: 20071010
  Serious: Yes (Death, Hospitalization, Disabling)
  Sender: FDA-Public Use
  Company Number: US-SHR-US-2007-021921

PATIENT
  Sex: Male

DRUGS (1)
  1. MAGNEVIST [Suspect]
     Indication: ANGIOGRAM
     Dosage: 60 ML, 1 DOSE
     Dates: start: 20050125, end: 20050125

REACTIONS (3)
  - CARDIAC ARREST [None]
  - EMOTIONAL DISTRESS [None]
  - NEPHROGENIC FIBROSING DERMOPATHY [None]
